FAERS Safety Report 12210940 (Version 1)
Quarter: 2016Q1

REPORT INFORMATION
  Report Type: Report from Study
  Country: BR (occurrence: BR)
  Receive Date: 20160325
  Receipt Date: 20160325
  Transmission Date: 20160526
  Serious: Yes (Other)
  Sender: FDA-Public Use
  Company Number: PHHY2016BR038967

PATIENT
  Sex: Male
  Weight: 40 kg

DRUGS (1)
  1. EXJADE [Suspect]
     Active Substance: DEFERASIROX
     Indication: SICKLE CELL ANAEMIA
     Dosage: UNK, QD
     Route: 048

REACTIONS (3)
  - Hepatic siderosis [Unknown]
  - Diarrhoea [Unknown]
  - Cerebrovascular accident [Unknown]
